FAERS Safety Report 8236736-4 (Version None)
Quarter: 2012Q1

REPORT INFORMATION
  Report Type: 
  Country: None (occurrence: None)
  Receive Date: 20120323
  Receipt Date: 20120308
  Transmission Date: 20120608
  Serious: Yes (Other)
  Sender: FDA-Public Use
  Company Number: 12-183

PATIENT
  Age: 68 Year
  Sex: Male

DRUGS (1)
  1. DYPHENHYDRAMINE / UNK / UNK [Suspect]
     Indication: HYPERSENSITIVITY
     Dosage: UNK

REACTIONS (3)
  - URINARY RETENTION [None]
  - ABDOMINAL PAIN LOWER [None]
  - MASS [None]
